FAERS Safety Report 9682403 (Version 3)
Quarter: 2013Q4

REPORT INFORMATION
  Report Type: Report from Study
  Country: US (occurrence: US)
  Receive Date: 20131112
  Receipt Date: 20131220
  Transmission Date: 20140711
  Serious: Yes (Life-Threatening, Hospitalization)
  Sender: FDA-Public Use
  Company Number: US-ROCHE-1290842

PATIENT
  Age: 71 Year
  Sex: Male

DRUGS (36)
  1. MYCOPHENOLATE MOFETIL [Suspect]
     Indication: RENAL TRANSPLANT
     Dosage: 1 DAY
     Route: 048
     Dates: start: 20080520
  2. PREDNISOLONE [Suspect]
     Indication: RENAL TRANSPLANT
     Dosage: 1 DAY
     Route: 048
     Dates: start: 20090430
  3. CICLOSPORIN [Suspect]
     Indication: RENAL TRANSPLANT
     Dosage: 1 DAY
     Route: 048
     Dates: start: 20100820
  4. HUMULIN [Concomitant]
     Route: 065
     Dates: start: 20130826, end: 20130923
  5. TYLENOL [Concomitant]
     Route: 065
     Dates: start: 20090125
  6. NORVASC [Concomitant]
     Route: 065
     Dates: start: 20090922
  7. ASPIRIN [Concomitant]
     Route: 065
     Dates: start: 20061212
  8. COREG [Concomitant]
     Route: 065
     Dates: start: 20061212
  9. LASIX [Concomitant]
     Route: 065
     Dates: start: 20090918
  10. IMDUR [Concomitant]
     Route: 065
     Dates: start: 20061212
  11. PRINIVIL [Concomitant]
     Route: 065
     Dates: start: 20091109
  12. PROTONIX (UNITED STATES) [Concomitant]
     Route: 065
     Dates: start: 20091130
  13. ZOCOR [Concomitant]
     Route: 065
     Dates: start: 20070201
  14. LANTUS [Concomitant]
     Route: 065
     Dates: start: 20130826, end: 20130923
  15. PROVENTIL [Concomitant]
  16. ALTEPLASE [Concomitant]
  17. DEXTROSE [Concomitant]
  18. EPOGEN [Concomitant]
     Route: 065
     Dates: start: 20130927
  19. PEPCID [Concomitant]
     Route: 065
     Dates: start: 20130921
  20. SUBLIMAZE [Concomitant]
  21. HEPARIN [Concomitant]
  22. APRESOLINE [Concomitant]
  23. SOLU-CORTEF [Concomitant]
  24. LEVEMIR [Concomitant]
  25. HUMALOG [Concomitant]
  26. ATROVENT [Concomitant]
  27. NORMODYNE [Concomitant]
  28. FLAGYL [Concomitant]
  29. NITROSTAT [Concomitant]
  30. ZOFRAN [Concomitant]
  31. ZOSYN [Concomitant]
  32. POTASSIUM CHLORIDE [Concomitant]
  33. VANCOCIN [Concomitant]
  34. ATIVAN [Concomitant]
  35. ZYPREXA [Concomitant]
  36. DIPRIVAN [Concomitant]

REACTIONS (6)
  - Pulseless electrical activity [Not Recovered/Not Resolved]
  - Renal failure acute [Recovered/Resolved]
  - Pyrexia [Not Recovered/Not Resolved]
  - Necrotising fasciitis [Not Recovered/Not Resolved]
  - Systemic inflammatory response syndrome [Not Recovered/Not Resolved]
  - Respiratory arrest [Not Recovered/Not Resolved]
